FAERS Safety Report 18721234 (Version 1)
Quarter: 2021Q1

REPORT INFORMATION
  Report Type: Spontaneous
  Country: SR (occurrence: SR)
  Receive Date: 20210109
  Receipt Date: 20210109
  Transmission Date: 20210419
  Serious: Yes (Death)
  Sender: FDA-Public Use
  Company Number: PHHY2018SR082126

PATIENT
  Sex: Female

DRUGS (1)
  1. GLIVEC [Suspect]
     Active Substance: IMATINIB MESYLATE
     Indication: CHRONIC MYELOID LEUKAEMIA
     Dosage: 400 MG, QD
     Route: 065

REACTIONS (4)
  - White blood cell count decreased [Unknown]
  - Chronic myeloid leukaemia transformation [Fatal]
  - Sepsis [Fatal]
  - Bone marrow failure [Fatal]
